FAERS Safety Report 10447729 (Version 1)
Quarter: 2014Q3

REPORT INFORMATION
  Report Type: Other
  Country: US (occurrence: US)
  Receive Date: 20140911
  Receipt Date: 20140911
  Transmission Date: 20150326
  Serious: Yes (Other)
  Sender: FDA-Public Use
  Company Number: US-ACORDA-ACO_105795_2014

PATIENT
  Sex: Female

DRUGS (14)
  1. CENTRUM WOMEN^S MULTI VITAMIN [Concomitant]
  2. ROPINEROLE [Concomitant]
     Active Substance: ROPINIROLE
  3. CALCIUM 600 + D3 [Concomitant]
  4. IRON [Concomitant]
     Active Substance: IRON
  5. ATORVASTATIN [Concomitant]
     Active Substance: ATORVASTATIN
  6. AUBAGIO [Concomitant]
     Active Substance: TERIFLUNOMIDE
  7. BABY ASPIRIN [Concomitant]
     Active Substance: ASPIRIN
  8. VITAMIN D3 [Concomitant]
     Active Substance: CHOLECALCIFEROL
  9. BETASERON [Concomitant]
     Active Substance: INTERFERON BETA-1B
  10. AMPYRA [Suspect]
     Active Substance: DALFAMPRIDINE
     Indication: MULTIPLE SCLEROSIS
     Dosage: 10 MG, BID
     Route: 048
  11. VENLAFAXINE ER [Concomitant]
     Active Substance: VENLAFAXINE HYDROCHLORIDE
  12. BACLOFEN. [Concomitant]
     Active Substance: BACLOFEN
  13. MODAFINIL. [Concomitant]
     Active Substance: MODAFINIL
  14. VITAMIN E [Concomitant]
     Active Substance: .ALPHA.-TOCOPHEROL

REACTIONS (1)
  - Breast cancer [Recovered/Resolved]
